FAERS Safety Report 13356789 (Version 3)
Quarter: 2017Q2

REPORT INFORMATION
  Report Type: Spontaneous
  Country: US (occurrence: US)
  Receive Date: 20170321
  Receipt Date: 20170628
  Transmission Date: 20170830
  Serious: No
  Sender: FDA-Public Use
  Company Number: GXBR2017US000896

PATIENT
  Age: 44 Year
  Sex: Female
  Weight: 75.74 kg

DRUGS (2)
  1. TAVIST ALLERGY [Concomitant]
     Active Substance: CLEMASTINE FUMARATE
     Indication: SEASONAL ALLERGY
     Dosage: 4 MG, QHS
     Route: 048
     Dates: start: 201610
  2. GLATOPA [Suspect]
     Active Substance: GLATIRAMER ACETATE
     Indication: MULTIPLE SCLEROSIS
     Dosage: 20 MG, QD
     Route: 058
     Dates: start: 20170101, end: 20170201

REACTIONS (16)
  - Malaise [Recovered/Resolved]
  - Ataxia [Recovered/Resolved]
  - Injection site mass [Recovered/Resolved]
  - Drug ineffective [Recovered/Resolved]
  - Pollakiuria [Recovered/Resolved]
  - Injection site pain [Recovered/Resolved]
  - Limb discomfort [Recovered/Resolved]
  - Bladder pain [Recovered/Resolved]
  - Multiple sclerosis relapse [Recovered/Resolved]
  - Injection site reaction [Recovered/Resolved]
  - Injection site inflammation [Recovered/Resolved]
  - Fatigue [Recovered/Resolved]
  - Hypotonia [Recovered/Resolved]
  - Muscular weakness [Recovered/Resolved]
  - Thinking abnormal [Recovered/Resolved]
  - Injection site erythema [Recovered/Resolved]

NARRATIVE: CASE EVENT DATE: 20170106
